FAERS Safety Report 12998235 (Version 2)
Quarter: 2016Q4

REPORT INFORMATION
  Report Type: Spontaneous
  Country: US (occurrence: US)
  Receive Date: 20161205
  Receipt Date: 20161209
  Transmission Date: 20170207
  Serious: No
  Sender: FDA-Public Use
  Company Number: US-HORIZON-RAV-0262-2016

PATIENT
  Age: 70 Year
  Sex: Female

DRUGS (5)
  1. L-CITRULLINE [Concomitant]
     Active Substance: CITRULLINE
     Dates: start: 201604
  2. METOPROLOL. [Concomitant]
     Active Substance: METOPROLOL
     Dates: start: 201604
  3. JANTOVEN [Concomitant]
     Active Substance: WARFARIN SODIUM
     Dates: start: 201604
  4. RAVICTI [Suspect]
     Active Substance: GLYCEROL PHENYLBUTYRATE
     Indication: UREA CYCLE ENZYME DEFICIENCY
     Dosage: 3.5 ML TID
     Dates: start: 201611
  5. L-CARNITINE [Concomitant]
     Active Substance: LEVOCARNITINE
     Dates: start: 201604

REACTIONS (2)
  - Paraesthesia [Not Recovered/Not Resolved]
  - Insomnia [Unknown]
